FAERS Safety Report 9880541 (Version 1)
Quarter: 2014Q1

REPORT INFORMATION
  Report Type: Spontaneous
  Country: CA (occurrence: None)
  Receive Date: 20140205
  Receipt Date: 20140205
  Transmission Date: 20141002
  Serious: Yes (Life-Threatening, Hospitalization)
  Sender: FDA-Public Use
  Company Number: SYM-2014-15937

PATIENT
  Age: 37 Year
  Sex: Male

DRUGS (6)
  1. WELLBUTRIN XL [Suspect]
     Indication: PRODUCT USED FOR UNKNOWN INDICATION
     Route: 048
  2. VYVANSE (LISDEXAMFETAMINE DIMESYLATE) CAPSULE [Suspect]
     Indication: PRODUCT USED FOR UNKNOWN INDICATION
     Route: 048
  3. CANNABIS [Concomitant]
  4. CIALIS [Concomitant]
  5. LYRICA (PREGABALIN) (PREGABALIN) [Concomitant]
  6. RAMIPRIL (RAMIPRIL) (RAMIPRIL) [Concomitant]

REACTIONS (12)
  - Abnormal behaviour [None]
  - Aggression [None]
  - Agitation [None]
  - Depression [None]
  - Feeling cold [None]
  - Feeling hot [None]
  - Memory impairment [None]
  - Pyrexia [None]
  - Self injurious behaviour [None]
  - Suicidal ideation [None]
  - Thinking abnormal [None]
  - Tremor [None]
